FAERS Safety Report 24789610 (Version 1)
Quarter: 2024Q4

REPORT INFORMATION
  Report Type: Spontaneous
  Country: AU (occurrence: None)
  Receive Date: 20241230
  Receipt Date: 20241230
  Transmission Date: 20250114
  Serious: Yes (Other)
  Sender: MDD OPERATIONS
  Company Number: AU-MDD US Operations-MDD202412-004822

PATIENT
  Age: 71 Year
  Sex: Female

DRUGS (1)
  1. APOMORPHINE HYDROCHLORIDE [Suspect]
     Active Substance: APOMORPHINE HYDROCHLORIDE
     Indication: Parkinson^s disease
     Dosage: NOT PROVIDED

REACTIONS (5)
  - Hodgkin^s disease [Unknown]
  - Fall [Unknown]
  - Sternal fracture [Unknown]
  - Fall [Unknown]
  - Wrist fracture [Unknown]

NARRATIVE: CASE EVENT DATE: 20241014
